FAERS Safety Report 5464289-2 (Version None)
Quarter: 2007Q3

REPORT INFORMATION
  Report Type: 
  Country: None (occurrence: None)
  Receive Date: 20070921
  Receipt Date: 20070912
  Transmission Date: 20080115
  Serious: Yes (Hospitalization)
  Sender: FDA-Public Use
  Company Number: B0486748A

PATIENT
  Sex: Male

DRUGS (1)
  1. LAMICTAL [Suspect]
     Route: 048
     Dates: start: 20030101

REACTIONS (15)
  - AGITATION [None]
  - ALTERED STATE OF CONSCIOUSNESS [None]
  - CEREBELLAR ATROPHY [None]
  - CEREBRAL ATROPHY [None]
  - CONVULSION [None]
  - CSF GLUCOSE INCREASED [None]
  - DRUG TOXICITY [None]
  - DYSKINESIA [None]
  - EXTENSOR PLANTAR RESPONSE [None]
  - EXTRAPYRAMIDAL DISORDER [None]
  - MASTICATION DISORDER [None]
  - OVERDOSE [None]
  - PYRAMIDAL TRACT SYNDROME [None]
  - RED BLOOD CELLS CSF POSITIVE [None]
  - REFLEXES ABNORMAL [None]
